FAERS Safety Report 9542419 (Version 2)
Quarter: 2013Q4

REPORT INFORMATION
  Report Type: Spontaneous
  Country: JP (occurrence: JP)
  Receive Date: 20130923
  Receipt Date: 20131008
  Transmission Date: 20140711
  Serious: Yes (Hospitalization)
  Sender: FDA-Public Use
  Company Number: JP-PFIZER INC-2013271427

PATIENT
  Age: 42 Year
  Sex: Female

DRUGS (6)
  1. SOLU-MEDROL [Suspect]
     Indication: NEPHROTIC SYNDROME
     Dosage: 500 MG DAILY,PULSE THERAPY
     Dates: start: 2008
  2. SOLU-MEDROL [Suspect]
     Dosage: 500 MG DAILY,PULSE THERAPY
     Dates: start: 2010
  3. PREDNISOLONE [Suspect]
     Indication: NEPHROTIC SYNDROME
     Dosage: 20 MG DAILY,PULSE THERAPY
     Dates: start: 2008
  4. PREDNISOLONE [Suspect]
     Dosage: 20MG DAILY
     Dates: start: 2010
  5. CICLOSPORIN [Concomitant]
     Indication: NEPHROTIC SYNDROME
     Dosage: 100 MG DAILY
     Dates: start: 2008
  6. CICLOSPORIN [Concomitant]
     Dosage: 75 MG DAILY
     Dates: start: 2010

REACTIONS (1)
  - Pneumatosis intestinalis [Recovering/Resolving]
